FAERS Safety Report 8555405 (Version 2)
Quarter: 2015Q1

REPORT INFORMATION
  Report Type: Spontaneous
  Country: US (occurrence: None)
  Receive Date: 20120330
  Receipt Date: 20150331
  Transmission Date: 20150721
  Serious: Yes (Other)
  Sender: FDA-Public Use
  Company Number: PHHY2011US67883

PATIENT
  Age: 78 Year
  Sex: Female

DRUGS (6)
  1. EXELON [Suspect]
     Active Substance: RIVASTIGMINE TARTRATE
     Indication: DEMENTIA ALZHEIMER^S TYPE
     Dosage: 9.5 MG, TRANSDERMAL
     Route: 062
     Dates: start: 20110411, end: 20110808
  2. CEREFOLIN NAC (ACETYLCYSTEINE, L-METHYLFOLATE, MECOBALAMIN) [Concomitant]
  3. BENICAR [Concomitant]
     Active Substance: OLMESARTAN MEDOXOMIL
  4. NAMENDA [Concomitant]
     Active Substance: MEMANTINE HYDROCHLORIDE
  5. SYNTHROID [Concomitant]
     Active Substance: LEVOTHYROXINE SODIUM
  6. VITAMIN B12 [Concomitant]
     Active Substance: CYANOCOBALAMIN

REACTIONS (5)
  - Application site urticaria [None]
  - Wrong technique in drug usage process [None]
  - Application site pruritus [None]
  - Application site erythema [None]
  - Application site rash [None]

NARRATIVE: CASE EVENT DATE: 20110411
